FAERS Safety Report 25105853 (Version 1)
Quarter: 2025Q1

REPORT INFORMATION
  Report Type: Spontaneous
  Country: US (occurrence: US)
  Receive Date: 20250321
  Receipt Date: 20250321
  Transmission Date: 20250408
  Serious: No
  Sender: BRAEBURN PHARMACEUTICALS
  Company Number: US-BRAEBURN-US-BRA-25-000046

PATIENT
  Age: 21 Year
  Sex: Male

DRUGS (1)
  1. BRIXADI [Suspect]
     Active Substance: BUPRENORPHINE
     Indication: Product used for unknown indication
     Dosage: 24 MILLIGRAM, WEEKLY
     Route: 065

REACTIONS (4)
  - Product dose omission issue [Unknown]
  - Dependence [Unknown]
  - Injection site mass [Unknown]
  - Injection site swelling [Unknown]

NARRATIVE: CASE EVENT DATE: 20250113
